FAERS Safety Report 14920111 (Version 1)
Quarter: 2018Q2

REPORT INFORMATION
  Report Type: Report from Study
  Country: GB (occurrence: GB)
  Receive Date: 20180521
  Receipt Date: 20180521
  Transmission Date: 20180711
  Serious: Yes (Hospitalization, Other)
  Sender: FDA-Public Use
  Company Number: GB-CELLTRION INC.-2018GB019759

PATIENT

DRUGS (2)
  1. REMSIMA [Suspect]
     Active Substance: INFLIXIMAB
     Indication: RHEUMATOID ARTHRITIS
     Dosage: UNK
     Route: 042
     Dates: start: 20170306, end: 20170306
  2. REMSIMA [Suspect]
     Active Substance: INFLIXIMAB
     Dosage: UNK

REACTIONS (2)
  - Varicella [Unknown]
  - Skin cancer [Unknown]

NARRATIVE: CASE EVENT DATE: 20170927
